FAERS Safety Report 4275161-8 (Version None)
Quarter: 2004Q1

REPORT INFORMATION
  Report Type: 
  Country: None (occurrence: None)
  Receive Date: 20040121
  Receipt Date: 20031002
  Transmission Date: 20041129
  Serious: Yes (Disabling, Other)
  Sender: FDA-Public Use
  Company Number: PHBS2003JP10867

PATIENT
  Sex: Female

DRUGS (11)
  1. CYMERIN [Suspect]
     Indication: PLATELET ADHESIVENESS INCREASED
     Route: 042
     Dates: start: 20010101
  2. CYMERIN [Suspect]
     Dosage: 50 MG/D
     Route: 042
     Dates: start: 20030702, end: 20030702
  3. CYMERIN [Suspect]
     Dosage: 50 MG/D
     Route: 042
     Dates: start: 20030730, end: 20030730
  4. CYMERIN [Suspect]
     Dosage: 50 MG/D
     Route: 042
     Dates: start: 20031022, end: 20031022
  5. SOLU-MEDROL [Suspect]
  6. MERCAZOLE [Concomitant]
     Dates: start: 19890101
  7. SUMIFON [Concomitant]
     Dosage: 3 DF/D
     Route: 048
     Dates: start: 20030304
  8. RIFADIN [Concomitant]
     Dosage: 3 DF/D
     Route: 048
     Dates: start: 20030304
  9. ESANBUTOL [Concomitant]
     Dosage: 750 MG/D
     Route: 048
     Dates: start: 20030304
  10. GLEEVEC [Suspect]
     Indication: CHRONIC MYELOID LEUKAEMIA
     Route: 048
  11. GLEEVEC [Suspect]
     Dosage: 400 MG/D
     Route: 048
     Dates: start: 20030409

REACTIONS (10)
  - BURNING SENSATION [None]
  - DISSEMINATED TUBERCULOSIS [None]
  - DYSAESTHESIA [None]
  - ERYTHEMA [None]
  - HYPOAESTHESIA [None]
  - INSOMNIA [None]
  - PAIN IN EXTREMITY [None]
  - PARAESTHESIA [None]
  - RASH [None]
  - RASH GENERALISED [None]
